FAERS Safety Report 5411918-5 (Version None)
Quarter: 2007Q3

REPORT INFORMATION
  Report Type: 
  Country: None (occurrence: None)
  Receive Date: 20070813
  Receipt Date: 20070808
  Transmission Date: 20080115
  Serious: Yes (Hospitalization, Other)
  Sender: FDA-Public Use
  Company Number: FR-ELI_LILLY_AND_COMPANY-FR200706004753

PATIENT
  Age: 68 Year
  Sex: Male
  Weight: 75 kg

DRUGS (2)
  1. ALIMTA [Suspect]
     Indication: ACCIDENTAL EXPOSURE
     Dosage: 700 MG, DAILY (1/D)
     Route: 058
     Dates: start: 20070619, end: 20070619
  2. ARACYTINE [Concomitant]
     Indication: LEUKAEMIA
     Dosage: UNK, OTHER
     Route: 058
     Dates: start: 20070219

REACTIONS (4)
  - APPLICATION SITE PARAESTHESIA [None]
  - DISSEMINATED INTRAVASCULAR COAGULATION [None]
  - MEDICATION ERROR [None]
  - PANCYTOPENIA [None]
